FAERS Safety Report 25358542 (Version 3)
Quarter: 2025Q4

REPORT INFORMATION
  Report Type: Report from Study
  Country: US (occurrence: None)
  Receive Date: 20250526
  Receipt Date: 20251230
  Transmission Date: 20260117
  Serious: Yes (Other)
  Sender: UCB
  Company Number: US-UCBSA-2025030737

PATIENT
  Age: 11 Year
  Weight: 38.1 kg

DRUGS (1)
  1. FENFLURAMINE HYDROCHLORIDE [Suspect]
     Active Substance: FENFLURAMINE HYDROCHLORIDE
     Indication: Seizure
     Dosage: 9.9 MILLIGRAM, 2X/DAY (BID)

REACTIONS (1)
  - Tricuspid valve incompetence [Not Recovered/Not Resolved]
